FAERS Safety Report 6327910-2 (Version None)
Quarter: 2009Q3

REPORT INFORMATION
  Report Type: 
  Country: None (occurrence: None)
  Receive Date: 20090825
  Receipt Date: 20080804
  Transmission Date: 20100115
  Serious: No
  Sender: FDA-Public Use
  Company Number: US-ABBOTT-07P-163-0372508-00

PATIENT
  Sex: Female
  Weight: 44.038 kg

DRUGS (13)
  1. SYNTHROID [Suspect]
     Indication: HYPOTHYROIDISM
     Route: 048
     Dates: start: 20070501
  2. SYNTHROID [Suspect]
     Route: 048
     Dates: start: 20070501
  3. SYNTHROID [Suspect]
     Route: 048
     Dates: start: 19960101
  4. SYNTHROID [Suspect]
     Route: 048
     Dates: start: 20080101, end: 20080301
  5. SYNTHROID [Suspect]
     Route: 048
     Dates: start: 20080301, end: 20080724
  6. SYNTHROID [Suspect]
     Route: 048
     Dates: start: 20080725
  7. SYNTHROID [Suspect]
     Route: 048
  8. THYROID TAB [Suspect]
     Route: 048
     Dates: end: 19960101
  9. SPIRONOLACTONE [Concomitant]
     Indication: DRUG USE FOR UNKNOWN INDICATION
  10. HYDROCHLORIZIDE [Concomitant]
     Indication: HYPERTENSION
     Route: 048
     Dates: start: 20080201
  11. VITAMIN D / CALCITRAL [Concomitant]
     Indication: VITAMIN SUPPLEMENTATION
     Route: 048
     Dates: start: 20080101
  12. RALOXIFENE HCL [Concomitant]
     Indication: PROPHYLAXIS
     Route: 048
  13. RALOXIFENE HCL [Concomitant]
     Indication: BONE DISORDER

REACTIONS (3)
  - DRUG INEFFECTIVE [None]
  - FATIGUE [None]
  - MALAISE [None]
